FAERS Safety Report 5916250-9 (Version None)
Quarter: 2008Q4

REPORT INFORMATION
  Report Type: 
  Country: None (occurrence: None)
  Receive Date: 20081013
  Receipt Date: 20081002
  Transmission Date: 20090506
  Serious: Yes (Other)
  Sender: FDA-Public Use
  Company Number: PHHY2008SE23420

PATIENT
  Age: 6 Year
  Sex: Female

DRUGS (1)
  1. RITALIN [Suspect]
     Indication: ATTENTION DEFICIT/HYPERACTIVITY DISORDER
     Dosage: UNK
     Dates: start: 20080617, end: 20080805

REACTIONS (6)
  - DECREASED APPETITE [None]
  - FRUSTRATION [None]
  - HYPERACUSIS [None]
  - INSOMNIA [None]
  - PALPITATIONS [None]
  - SUICIDAL BEHAVIOUR [None]
